FAERS Safety Report 7209414-8 (Version None)
Quarter: 2011Q1

REPORT INFORMATION
  Report Type: 
  Country: None (occurrence: None)
  Receive Date: 20110104
  Receipt Date: 20101220
  Transmission Date: 20110831
  Serious: Yes (Hospitalization)
  Sender: FDA-Public Use
  Company Number: JP-AMGEN-QUU443709

PATIENT

DRUGS (10)
  1. ACTONEL [Concomitant]
     Dosage: 17.5 MG, QD
     Route: 048
  2. MITIGLINIDE CALCIUM HYDRATE [Concomitant]
     Dosage: 30 MG, QD
     Route: 048
  3. METHOTREXATE [Concomitant]
     Dosage: 4 MG, QD
     Route: 048
     Dates: start: 20050101
  4. ALFACALCIDOL [Concomitant]
     Dosage: .5 A?G, QD
     Route: 048
  5. TEPRENONE [Concomitant]
     Dosage: 150 MG, QD
     Route: 048
  6. ENBREL [Suspect]
     Indication: RHEUMATOID ARTHRITIS
     Dosage: 25 MG, QWK
     Route: 058
     Dates: start: 20090318, end: 20100821
  7. GASTER [Concomitant]
     Dosage: 20 MG, QD
     Route: 048
  8. LOXOPROFEN SODIUM [Concomitant]
     Dosage: 120 MG, QD
     Route: 048
  9. ASPIRIN [Concomitant]
     Dosage: 100 MG, QD
     Route: 048
  10. FOLIAMIN [Concomitant]
     Dosage: 5 MG, QWK
     Route: 048

REACTIONS (1)
  - PNEUMOCYSTIS JIROVECI PNEUMONIA [None]
